FAERS Safety Report 7604756-6 (Version None)
Quarter: 2011Q3

REPORT INFORMATION
  Report Type: 
  Country: None (occurrence: None)
  Receive Date: 20110712
  Receipt Date: 20110628
  Transmission Date: 20111222
  Serious: Yes (Other)
  Sender: FDA-Public Use
  Company Number: PHHY2011US57820

PATIENT
  Sex: Female

DRUGS (6)
  1. VENLAFAXINE [Concomitant]
     Dosage: 75 MG, UNK
  2. TRICOR [Concomitant]
  3. NOVOLOG [Concomitant]
     Dosage: 5 IU, BEFORE MEALS
  4. DIOVAN HCT [Suspect]
     Dosage: 160 VALS AND 12.5 MG HYDROCHLOROTHIAZIDE, ONCE DAILY
     Route: 048
     Dates: start: 20101001
  5. LEVEMIR [Concomitant]
     Dosage: 26 IU, AT NIGHT
  6. LESCOL XL [Concomitant]
     Dosage: 80 MG, UNK

REACTIONS (8)
  - THIRST [None]
  - ASTHENIA [None]
  - FATIGUE [None]
  - HYDROCEPHALUS [None]
  - DRY MOUTH [None]
  - GAIT DISTURBANCE [None]
  - DRY EYE [None]
  - MUSCLE FATIGUE [None]
